FAERS Safety Report 21561827 (Version 2)
Quarter: 2022Q4

REPORT INFORMATION
  Report Type: Spontaneous
  Country: US (occurrence: US)
  Receive Date: 20221107
  Receipt Date: 20221206
  Transmission Date: 20230113
  Serious: No
  Sender: FDA-Public Use
  Company Number: US-PFIZER INC-202201245718

PATIENT
  Age: 8 Year
  Sex: Male
  Weight: 24.04 kg

DRUGS (1)
  1. GENOTROPIN [Suspect]
     Active Substance: SOMATROPIN
     Indication: Prader-Willi syndrome
     Dosage: 0.8 MG (ROTATES ARMS AND LEGS)

REACTIONS (4)
  - Circumstance or information capable of leading to medication error [Unknown]
  - Device failure [Unknown]
  - Device information output issue [Unknown]
  - Device breakage [Unknown]
